FAERS Safety Report 5310593-8 (Version None)
Quarter: 2007Q1

REPORT INFORMATION
  Report Type: 
  Country: None (occurrence: None)
  Receive Date: 20070201
  Receipt Date: 20061116
  Transmission Date: 20070707
  Serious: No
  Sender: FDA-Public Use
  Company Number: 258638

PATIENT
  Age: 57 Year
  Sex: Male
  Weight: 118.8 kg

DRUGS (5)
  1. LEVEMIR [Suspect]
     Indication: BLOOD INSULIN
     Dosage: 100 IU, QD, SUBCUTANEOUS
     Route: 058
     Dates: start: 20060901
  2. LEVEMIR [Suspect]
     Indication: DIABETES MELLITUS
     Dosage: 100 IU, QD, SUBCUTANEOUS
     Route: 058
     Dates: start: 20060901
  3. NOVOLOG MIX 70/30 [Suspect]
     Indication: BLOOD INSULIN
     Dosage: 90 IU, QD, SUBCUTANEOUS
     Route: 058
     Dates: start: 20060901
  4. NOVOLOG MIX 70/30 [Suspect]
     Indication: DIABETES MELLITUS
     Dosage: 90 IU, QD, SUBCUTANEOUS
     Route: 058
     Dates: start: 20060901
  5. ZOCOR [Concomitant]

REACTIONS (1)
  - BLOOD GLUCOSE INCREASED [None]
